FAERS Safety Report 6089782-3 (Version None)
Quarter: 2009Q1

REPORT INFORMATION
  Report Type: 
  Country: None (occurrence: None)
  Receive Date: 20090220
  Receipt Date: 20090206
  Transmission Date: 20090719
  Serious: Yes (Hospitalization, Other)
  Sender: FDA-Public Use
  Company Number: 231439K09USA

PATIENT
  Age: 49 Year
  Sex: Female

DRUGS (15)
  1. REBIF [Suspect]
     Indication: MULTIPLE SCLEROSIS
     Dosage: 44 MCG, 3 IN 1 WEEKS, SUBCUTANEOUS
     Route: 058
     Dates: start: 20050321
  2. NITROFURANTOIN [Suspect]
     Indication: CYSTITIS
     Dosage: NOT REPORTED
     Dates: start: 20080901, end: 20080901
  3. NITROFURANTOIN [Suspect]
     Indication: CYSTITIS
     Dosage: NOT REPORTED
     Dates: start: 20081101, end: 20081101
  4. NITROFURANTOIN [Suspect]
     Indication: CYSTITIS
     Dosage: NOT REPORTED
     Dates: start: 20081230, end: 20081230
  5. AMOX-CLAD (AMOXICILLIN W/ CLAVALUNATE POTASSIUM) [Concomitant]
  6. BACLOFEN [Concomitant]
  7. OPTIVAR [Concomitant]
  8. GABAPENTIN [Concomitant]
  9. URELLE (ALL OTHER THERAPEUTIC PRODUCTS) [Concomitant]
  10. PROVIGIL [Concomitant]
  11. TEMAZEPAM [Concomitant]
  12. SETRALINE (SETRALINE) [Concomitant]
  13. HYDROCODONE (HYDROCODONE) [Concomitant]
  14. ALBUTEROL (SALBUTAMOL /00139501/) [Concomitant]
  15. DAILY VITAMINS (DAILY VITAMINS) [Concomitant]

REACTIONS (11)
  - ANAPHYLACTIC REACTION [None]
  - APHASIA [None]
  - CONSTIPATION [None]
  - CYSTITIS [None]
  - DRUG HYPERSENSITIVITY [None]
  - FUNGAL INFECTION [None]
  - MULTIPLE SCLEROSIS RELAPSE [None]
  - MUSCLE SPASTICITY [None]
  - OPTIC NEURITIS [None]
  - RHEUMATOID ARTHRITIS [None]
  - SHOCK [None]
